FAERS Safety Report 14093365 (Version 1)
Quarter: 2017Q4

REPORT INFORMATION
  Report Type: Report from Study
  Country: IE (occurrence: IE)
  Receive Date: 20171016
  Receipt Date: 20171016
  Transmission Date: 20180321
  Serious: Yes (Hospitalization)
  Sender: FDA-Public Use
  Company Number: IE-IPSEN BIOPHARMACEUTICALS, INC.-2017-09348

PATIENT
  Sex: Male

DRUGS (2)
  1. SOMATULINE AUTOGEL 90MG [Suspect]
     Active Substance: LANREOTIDE ACETATE
     Indication: ACROMEGALY
     Dosage: 90 MG
     Route: 058
     Dates: start: 20170314, end: 2017
  2. ELTROXIN [Concomitant]
     Active Substance: LEVOTHYROXINE
     Route: 050

REACTIONS (1)
  - Brain neoplasm benign [Unknown]

NARRATIVE: CASE EVENT DATE: 2017
